FAERS Safety Report 13860838 (Version 1)
Quarter: 2017Q3

REPORT INFORMATION
  Report Type: Spontaneous
  Country: US (occurrence: US)
  Receive Date: 20170811
  Receipt Date: 20170811
  Transmission Date: 20171127
  Serious: Yes (Hospitalization)
  Sender: FDA-Public Use
  Company Number: None

PATIENT
  Age: 63 Year
  Sex: Female
  Weight: 93 kg

DRUGS (3)
  1. CARBOPLATIN. [Suspect]
     Active Substance: CARBOPLATIN
     Dates: end: 20170721
  2. TAXOL [Suspect]
     Active Substance: PACLITAXEL
     Dates: end: 20170721
  3. METFORMIN HYDROCHLORIDE. [Suspect]
     Active Substance: METFORMIN HYDROCHLORIDE
     Dates: end: 20170804

REACTIONS (6)
  - Pruritus [None]
  - Malaise [None]
  - Dyspnoea [None]
  - Pyrexia [None]
  - Dysuria [None]
  - Nausea [None]

NARRATIVE: CASE EVENT DATE: 20170805
